FAERS Safety Report 21551715 (Version 1)
Quarter: 2022Q4

REPORT INFORMATION
  Report Type: Spontaneous
  Country: CA (occurrence: CA)
  Receive Date: 20221103
  Receipt Date: 20221103
  Transmission Date: 20230113
  Serious: Yes (Other)
  Sender: FDA-Public Use
  Company Number: CA-BAXTER-2022BAX023540

PATIENT
  Age: 84 Year
  Sex: Female

DRUGS (1)
  1. CEFTRIAXONE [Suspect]
     Active Substance: CEFTRIAXONE
     Indication: Pyelonephritis acute
     Dosage: DOSE AND FREQUENCY NOT REPORTED (DOSAGE FORM: INJECTION)
     Route: 041

REACTIONS (2)
  - Oropharyngeal swelling [Recovered/Resolved]
  - Anaphylactic reaction [Recovered/Resolved]
